FAERS Safety Report 9300246 (Version 1)
Quarter: 2012Q4

REPORT INFORMATION
  Report Type: Spontaneous
  Country: US (occurrence: None)
  Receive Date: 20121109
  Receipt Date: 20121109
  Transmission Date: 20130627
  Serious: Yes (Hospitalization)
  Sender: FDA-Public Use
  Company Number: 2011S1000816

PATIENT
  Age: 47 Year
  Sex: Female

DRUGS (8)
  1. CUBICIN [Suspect]
     Indication: PROPHYLAXIS
     Route: 042
     Dates: start: 20110915
  2. ERTAPENEM [Suspect]
     Indication: PROPHYLAXIS
     Route: 042
     Dates: start: 20110915
  3. ALL OTHER THERAPEUTIC PRODUCTS [Suspect]
     Indication: METASTATIC BREAST CANCER
     Route: 042
     Dates: start: 20100318, end: 20111024
  4. VALTREX [Concomitant]
  5. COUMADIN [Concomitant]
  6. KLONOPIN [Concomitant]
  7. NORCO [Concomitant]
  8. PRILOSEC [Concomitant]

REACTIONS (1)
  - Enterocolitis [None]
